FAERS Safety Report 4383958-9 (Version None)
Quarter: 2004Q2

REPORT INFORMATION
  Report Type: 
  Country: None (occurrence: None)
  Receive Date: 20040621
  Receipt Date: 20040609
  Transmission Date: 20050107
  Serious: Yes (Hospitalization)
  Sender: FDA-Public Use
  Company Number: FR-JNJFOC-20040305132

PATIENT
  Age: 67 Year
  Sex: Female
  Weight: 65 kg

DRUGS (9)
  1. DURAGESIC [Suspect]
     Indication: PAIN
     Dosage: 25 UG/HR, 1 IN 3 DAY, TRANSDERMAL
     Route: 062
     Dates: start: 20030101, end: 20040301
  2. DUROGESIC (FENTANYL) [Concomitant]
  3. CLONAZEPAM [Concomitant]
  4. INSULIN MIX 50 (INSULIN INJECTION, ISOPHANE) [Concomitant]
  5. INSULINES NPH (INSULIN INJECTION, ISOPHANE) [Concomitant]
  6. INSULINE HUMALOG (INSULIN LISPRO) [Concomitant]
  7. ISOPTIN [Concomitant]
  8. TICLID [Concomitant]
  9. VALIUM [Concomitant]

REACTIONS (1)
  - HYPOGLYCAEMIA [None]
